FAERS Safety Report 5801637-5 (Version None)
Quarter: 2008Q3

REPORT INFORMATION
  Report Type: 
  Country: None (occurrence: None)
  Receive Date: 20080707
  Receipt Date: 20080701
  Transmission Date: 20090109
  Serious: Yes (Other)
  Sender: FDA-Public Use
  Company Number: A0735594A

PATIENT

DRUGS (6)
  1. LAMICTAL [Suspect]
     Indication: DRUG USE FOR UNKNOWN INDICATION
     Route: 048
  2. GABAPENTIN [Concomitant]
  3. HYDROCHLOROTHIAZIDE [Concomitant]
  4. ADVAIR DISKUS 100/50 [Concomitant]
  5. ASPIRIN [Concomitant]
  6. ALBUTEROL [Concomitant]

REACTIONS (2)
  - HEPATIC ENZYME INCREASED [None]
  - RENAL FAILURE [None]
